FAERS Safety Report 6173668-X (Version None)
Quarter: 2009Q2

REPORT INFORMATION
  Report Type: 
  Country: None (occurrence: None)
  Receive Date: 20090430
  Receipt Date: 20090428
  Transmission Date: 20091009
  Serious: Yes (Death, Life-Threatening, Other)
  Sender: FDA-Public Use
  Company Number: CA-ROXANE LABORATORIES, INC.-2009-RO-00415RO

PATIENT
  Age: 24 Year
  Sex: Female

DRUGS (2)
  1. PREDNISONE [Suspect]
     Indication: JUVENILE ARTHRITIS
  2. CONTRACEPTIVES [Suspect]
     Route: 048

REACTIONS (5)
  - CARDIAC ARREST [None]
  - DEATH [None]
  - EMBOLISM [None]
  - INTRACARDIAC THROMBUS [None]
  - MYOCARDIAL INFARCTION [None]
